FAERS Safety Report 21129501 (Version 1)
Quarter: 2022Q3

REPORT INFORMATION
  Report Type: Spontaneous
  Country: US (occurrence: US)
  Receive Date: 20220726
  Receipt Date: 20220726
  Transmission Date: 20221027
  Serious: Yes (Other)
  Sender: FDA-Public Use
  Company Number: US-SUN PHARMACEUTICAL INDUSTRIES LTD-2022R1-345337

PATIENT
  Age: 67 Year
  Sex: Female

DRUGS (2)
  1. AMPHOTERICIN B [Suspect]
     Active Substance: AMPHOTERICIN B
     Indication: Keratitis fungal
     Dosage: UNK (5 MG/0.1 ML)
  2. FLUCONAZOLE [Concomitant]
     Active Substance: FLUCONAZOLE
     Indication: Keratitis fungal
     Dosage: UNK (200 MG)
     Route: 048

REACTIONS (5)
  - Toxicity to various agents [Unknown]
  - Visual acuity reduced [Recovering/Resolving]
  - Corneal oedema [Recovering/Resolving]
  - Therapeutic response decreased [Unknown]
  - Discomfort [Recovering/Resolving]
